FAERS Safety Report 11394192 (Version 1)
Quarter: 2015Q3

REPORT INFORMATION
  Report Type: Spontaneous
  Country: US (occurrence: US)
  Receive Date: 20150819
  Receipt Date: 20150819
  Transmission Date: 20151125
  Serious: Yes (Hospitalization, Other)
  Sender: FDA-Public Use
  Company Number: US-TEVA-586013USA

PATIENT
  Age: 57 Year
  Sex: Female

DRUGS (27)
  1. VORINOSTAT [Suspect]
     Active Substance: VORINOSTAT
     Route: 065
  2. INTERFERON [Suspect]
     Active Substance: INTERFERON
     Route: 065
  3. LEVOSALBUTAMOL [Concomitant]
     Active Substance: LEVALBUTEROL
     Indication: DYSPNOEA
     Dosage: 2 PUFFS TWICE DAILY AS NEEDED
     Route: 055
  4. LEVOTHYROXINE SODIUM. [Concomitant]
     Active Substance: LEVOTHYROXINE SODIUM
     Dosage: 100 MICROG/DAY
     Route: 065
  5. ESCITALOPRAM [Concomitant]
     Active Substance: ESCITALOPRAM OXALATE
     Dosage: 10 MG/DAY
     Route: 065
  6. METOPROLOL [Concomitant]
     Active Substance: METOPROLOL
     Route: 065
  7. ESOMEPRAZOLE [Concomitant]
     Active Substance: ESOMEPRAZOLE
     Dosage: 40 MG/DAY
     Route: 065
  8. TRIAMCINOLONE [Concomitant]
     Active Substance: TRIAMCINOLONE
     Indication: RASH
     Dosage: (0.1%) DAILY AS NEEDED
     Route: 061
  9. ACICLOVIR [Suspect]
     Active Substance: ACYCLOVIR
     Indication: HERPES SIMPLEX
     Route: 048
  10. AZITHROMYCIN [Concomitant]
     Active Substance: AZITHROMYCIN ANHYDROUS
     Dosage: 500 MG/DAY
     Route: 065
  11. AMIODARONE [Concomitant]
     Active Substance: AMIODARONE
     Route: 065
  12. ASPIRIN. [Concomitant]
     Active Substance: ASPIRIN
     Dosage: 81 MG/DAY
     Route: 065
  13. DIGOXIN. [Concomitant]
     Active Substance: DIGOXIN
     Dosage: 0.125 MG/DAY
     Route: 065
  14. NIFEDIPINE. [Concomitant]
     Active Substance: NIFEDIPINE
     Dosage: 30 MG/DAY
     Route: 065
  15. PROCHLORPERAZINE. [Concomitant]
     Active Substance: PROCHLORPERAZINE
     Indication: NAUSEA
     Dosage: AS NEEDED
     Route: 065
  16. PRAVASTATIN [Concomitant]
     Active Substance: PRAVASTATIN\PRAVASTATIN SODIUM
     Dosage: 40 MG/DAY
     Route: 065
  17. CLONAZEPAM. [Concomitant]
     Active Substance: CLONAZEPAM
     Route: 065
  18. CICLOPIROX. [Concomitant]
     Active Substance: CICLOPIROX
     Dosage: (0.7%) DAILY
     Route: 061
  19. VALACICLOVIR [Suspect]
     Active Substance: VALACYCLOVIR HYDROCHLORIDE
     Indication: HERPES SIMPLEX
     Dosage: 500 MILLIGRAM DAILY;
     Route: 048
  20. NYSTATIN. [Concomitant]
     Active Substance: NYSTATIN
     Route: 065
  21. MORPHINE [Concomitant]
     Active Substance: MORPHINE
     Dosage: AS NEEDED
     Route: 065
  22. GABAPENTIN. [Concomitant]
     Active Substance: GABAPENTIN
     Route: 048
  23. FERROUS SULFATE [Concomitant]
     Active Substance: FERROUS SULFATE\FERROUS SULFATE, DRIED
     Route: 065
  24. FUROSEMIDE. [Concomitant]
     Active Substance: FUROSEMIDE
     Route: 065
  25. LISINOPRIL. [Concomitant]
     Active Substance: LISINOPRIL
     Dosage: 10 MG/DAY
     Route: 065
  26. MORPHINE [Concomitant]
     Active Substance: MORPHINE
     Indication: PAIN
     Route: 065
  27. UREA. [Concomitant]
     Active Substance: UREA
     Indication: DRY SKIN
     Dosage: (10%) TWICE DAILY AS NEEDED
     Route: 061

REACTIONS (8)
  - Hypersensitivity [Recovered/Resolved]
  - Parakeratosis [Recovered/Resolved]
  - Dermatitis psoriasiform [Recovered/Resolved]
  - Flushing [Unknown]
  - Herpes simplex [Recovered/Resolved]
  - Pain in extremity [Unknown]
  - Gastrointestinal toxicity [Unknown]
  - Eczema [Recovered/Resolved]
